FAERS Safety Report 17742733 (Version 1)
Quarter: 2020Q2

REPORT INFORMATION
  Report Type: Spontaneous
  Country: US (occurrence: US)
  Receive Date: 20200505
  Receipt Date: 20200505
  Transmission Date: 20200714
  Serious: Yes (Death)
  Sender: FDA-Public Use
  Company Number: US-TEVA-2020-US-1232739

PATIENT
  Sex: Female

DRUGS (1)
  1. AUSTEDO [Suspect]
     Active Substance: DEUTETRABENAZINE
     Indication: HUNTINGTON^S DISEASE
     Dosage: 36 MILLIGRAM DAILY;
     Route: 048

REACTIONS (1)
  - Death [Fatal]
